FAERS Safety Report 19599593 (Version 1)
Quarter: 2021Q3

REPORT INFORMATION
  Report Type: Spontaneous
  Country: DE (occurrence: DE)
  Receive Date: 20210722
  Receipt Date: 20210722
  Transmission Date: 20211014
  Serious: Yes (Other)
  Sender: FDA-Public Use
  Company Number: DE-KYOWAKIRIN-2021BKK012475

PATIENT

DRUGS (2)
  1. POTELIGEO [Suspect]
     Active Substance: MOGAMULIZUMAB-KPKC
     Dosage: STARTING IN WEEK 5 EVERY TWO WEEKS.
     Route: 065
  2. POTELIGEO [Suspect]
     Active Substance: MOGAMULIZUMAB-KPKC
     Indication: PRODUCT USED FOR UNKNOWN INDICATION
     Dosage: FOR THE FIRST 4 WEEKS ADMINISTRATION OF 1MG/KG ONCE PER WEEK
     Route: 065

REACTIONS (2)
  - Disease progression [Unknown]
  - Rash [Unknown]
